FAERS Safety Report 9445693 (Version 1)
Quarter: 2013Q3

REPORT INFORMATION
  Report Type: Spontaneous
  Country: BR (occurrence: BR)
  Receive Date: 20130807
  Receipt Date: 20130807
  Transmission Date: 20140515
  Serious: Yes (Hospitalization)
  Sender: FDA-Public Use
  Company Number: BR-PFIZER INC-2013227314

PATIENT
  Age: 63 Year
  Sex: Female
  Weight: 62 kg

DRUGS (4)
  1. LIPITOR [Suspect]
     Dosage: 40 MG, 1X/DAY
     Route: 048
     Dates: start: 201306
  2. PLAVIX [Concomitant]
     Dosage: UNK
  3. SOMALGIN CARDIO [Concomitant]
     Dosage: UNK
  4. ZYLORIC [Concomitant]
     Dosage: UNK

REACTIONS (2)
  - Angiopathy [Unknown]
  - Cardiac disorder [Unknown]
